FAERS Safety Report 10626318 (Version 4)
Quarter: 2015Q1

REPORT INFORMATION
  Report Type: Spontaneous
  Country: US (occurrence: None)
  Receive Date: 20141203
  Receipt Date: 20150224
  Transmission Date: 20150720
  Serious: Yes (Other)
  Sender: FDA-Public Use
  Company Number: 2014CT000198

PATIENT
  Age: 46 Year
  Sex: Female
  Weight: 79.83 kg

DRUGS (3)
  1. KORLYM [Suspect]
     Active Substance: MIFEPRISTONE
     Indication: CUSHING^S SYNDROME
     Dosage: 900 MG; OD; PO
     Route: 048
     Dates: start: 201407, end: 201408
  2. UROCIT-K [Concomitant]
     Active Substance: POTASSIUM CITRATE
  3. AMLODIPINE W/OLMESARTAN [Concomitant]

REACTIONS (5)
  - Uterine dilation and curettage [None]
  - Endometrial hypertrophy [None]
  - Metrorrhagia [None]
  - Vomiting [None]
  - Vaginal haemorrhage [None]

NARRATIVE: CASE EVENT DATE: 201411
